FAERS Safety Report 8856942 (Version 1)
Quarter: 2012Q4

REPORT INFORMATION
  Report Type: Spontaneous
  Country: US (occurrence: None)
  Receive Date: 20121023
  Receipt Date: 20121023
  Transmission Date: 20130627
  Serious: Yes (Other)
  Sender: FDA-Public Use
  Company Number: None

PATIENT
  Age: 49 Year
  Sex: Female
  Weight: 77.11 kg

DRUGS (1)
  1. LITHIUM CARBONATE [Suspect]
     Route: 048
     Dates: start: 20121013, end: 20121022

REACTIONS (3)
  - Tremor [None]
  - Restlessness [None]
  - Insomnia [None]
